FAERS Safety Report 7892451-8 (Version None)
Quarter: 2011Q4

REPORT INFORMATION
  Report Type: 
  Country: None (occurrence: None)
  Receive Date: 20111102
  Receipt Date: 20111020
  Transmission Date: 20120403
  Serious: Yes (Other)
  Sender: FDA-Public Use
  Company Number: 2010SP066066

PATIENT
  Age: 68 Year
  Sex: Female

DRUGS (1)
  1. TEMODAL [Suspect]
     Indication: GLIOBLASTOMA MULTIFORME

REACTIONS (3)
  - HEMIPLEGIA [None]
  - DISORIENTATION [None]
  - BRAIN OEDEMA [None]
